FAERS Safety Report 9909060 (Version 1)
Quarter: 2014Q1

REPORT INFORMATION
  Report Type: Spontaneous
  Country: US (occurrence: None)
  Receive Date: 20140214
  Receipt Date: 20140214
  Transmission Date: 20141002
  Serious: No
  Sender: FDA-Public Use
  Company Number: None

PATIENT
  Age: 73 Year
  Sex: Male

DRUGS (6)
  1. PALIPERIDONE [Suspect]
     Dosage: 234  IM
     Route: 030
  2. INSULIN [Concomitant]
  3. GLUCAGON [Concomitant]
  4. OMEPRAZOLE [Concomitant]
  5. LISINOPRIL [Concomitant]
  6. TERAZOSIN [Concomitant]

REACTIONS (1)
  - Urticaria [None]
